FAERS Safety Report 21497036 (Version 2)
Quarter: 2022Q4

REPORT INFORMATION
  Report Type: Spontaneous
  Country: FR (occurrence: FR)
  Receive Date: 20221023
  Receipt Date: 20221029
  Transmission Date: 20230112
  Serious: Yes (Other)
  Sender: FDA-Public Use
  Company Number: FR-STADA-259842

PATIENT
  Age: 58 Year
  Sex: Male

DRUGS (7)
  1. AMOXICILLIN [Suspect]
     Active Substance: AMOXICILLIN
     Indication: Skin test
     Dosage: 1/10 DILUTION OF THE MAXIMUM DOSE OF AMOXICILLIN
     Route: 023
  2. PENICILLIN [Suspect]
     Active Substance: PENICILLIN
     Indication: Skin test
     Dosage: 1/10 DILUTION OF THE MAXIMUM DOSE OF BENZYLPENICILLIN
     Route: 023
  3. CEFAZOLIN [Concomitant]
     Active Substance: CEFAZOLIN
     Indication: Skin test
     Dosage: 1/10 DILUTION OF THE MAXIMUM DOSE OF CEFAZOLIN
     Route: 023
  4. CEFTRIAXONE [Concomitant]
     Active Substance: CEFTRIAXONE
     Indication: Skin test
     Dosage: 1/10 DILUTION OF THE MAXIMUM DOSE OF CEFTRIAXONE
     Route: 023
  5. CEFUROXIME [Concomitant]
     Active Substance: CEFUROXIME
     Indication: Skin test
     Dosage: 1/10 DILUTION OF THE MAXIMUM DOSE OF CEFUROXIME
     Route: 023
  6. CEFIXIME [Concomitant]
     Active Substance: CEFIXIME
     Indication: Skin test
     Dosage: 1/10 DILUTION OF THE MAXIMUM DOSE OF CEFIXIME
     Route: 023
  7. CEFOTAXIME [Concomitant]
     Active Substance: CEFOTAXIME SODIUM
     Indication: Skin test
     Dosage: 1/10 DILUTION OF THE MAXIMUM DOSE OF CEFOTAXIME
     Route: 023

REACTIONS (2)
  - Angioedema [Recovered/Resolved]
  - Urticaria [Recovered/Resolved]
